FAERS Safety Report 13345569 (Version 1)
Quarter: 2017Q1

REPORT INFORMATION
  Report Type: Spontaneous
  Country: US (occurrence: US)
  Receive Date: 20170317
  Receipt Date: 20170317
  Transmission Date: 20170428
  Serious: Yes (Disabling, Other)
  Sender: FDA-Public Use
  Company Number: US-REGENERON PHARMACEUTICALS, INC.-2017-13098

PATIENT

DRUGS (2)
  1. EYLEA [Suspect]
     Active Substance: AFLIBERCEPT
     Indication: MACULAR OEDEMA
     Dosage: RIGHT EYE (OD); LAST DOSE
     Route: 031
     Dates: start: 20170227, end: 20170227
  2. EYLEA [Suspect]
     Active Substance: AFLIBERCEPT
     Indication: RETINAL VEIN OCCLUSION
     Dosage: RIGHT EYE (OD); EVERY 2 MONTHS
     Route: 031
     Dates: start: 2014

REACTIONS (3)
  - Blindness unilateral [Unknown]
  - Intraocular pressure increased [Unknown]
  - Endophthalmitis [Unknown]

NARRATIVE: CASE EVENT DATE: 20170301
